FAERS Safety Report 24236876 (Version 1)
Quarter: 2024Q3

REPORT INFORMATION
  Report Type: Spontaneous
  Country: IT (occurrence: IT)
  Receive Date: 20240822
  Receipt Date: 20240822
  Transmission Date: 20241017
  Serious: Yes (Other)
  Sender: TEVA
  Company Number: None

PATIENT
  Age: 8 Year
  Sex: Female
  Weight: 20.5 kg

DRUGS (7)
  1. BORTEZOMIB [Suspect]
     Active Substance: BORTEZOMIB
     Indication: Autoimmune haemolytic anaemia
     Route: 042
  2. ANAKINRA [Concomitant]
     Active Substance: ANAKINRA
     Indication: Macrophage activation
     Route: 042
     Dates: start: 20240530, end: 20240626
  3. MICAFUNGIN [Concomitant]
     Active Substance: MICAFUNGIN SODIUM
     Indication: Candida sepsis
     Route: 042
     Dates: start: 20240528, end: 20240528
  4. ONDANSETRON [Concomitant]
     Active Substance: ONDANSETRON
     Indication: Nausea
     Dosage: 5 MG/12 HOURS
     Route: 042
     Dates: start: 20240618, end: 20240710
  5. METHYLPREDNISOLONE [Concomitant]
     Active Substance: METHYLPREDNISOLONE
     Indication: Haemolytic anaemia
     Dosage: 12 MG/12 HOURS
     Route: 042
     Dates: start: 20240530, end: 20240710
  6. TRIMETON [Concomitant]
     Active Substance: CHLORPHENIRAMINE MALEATE
     Indication: Product used for unknown indication
     Route: 065
  7. CEFTAZIDIME AVIBACTAM [Concomitant]
     Indication: Infection
     Route: 042
     Dates: start: 20240628, end: 20240628

REACTIONS (3)
  - Abdominal pain [Recovered/Resolved]
  - Rectal haemorrhage [Recovered/Resolved]
  - Intussusception [Recovered/Resolved]

NARRATIVE: CASE EVENT DATE: 20240630
